FAERS Safety Report 5649086-7 (Version None)
Quarter: 2008Q1

REPORT INFORMATION
  Report Type: 
  Country: None (occurrence: None)
  Receive Date: 20080304
  Receipt Date: 20080221
  Transmission Date: 20080703
  Serious: Yes (Hospitalization)
  Sender: FDA-Public Use
  Company Number: US-ELI_LILLY_AND_COMPANY-US200802005213

PATIENT
  Sex: Male

DRUGS (2)
  1. FORTEO [Suspect]
     Indication: OSTEOPOROSIS
     Dates: start: 20080121
  2. PREVACID [Concomitant]

REACTIONS (4)
  - DECREASED APPETITE [None]
  - DEHYDRATION [None]
  - INFLUENZA [None]
  - MALAISE [None]
